FAERS Safety Report 21889398 (Version 1)
Quarter: 2023Q1

REPORT INFORMATION
  Report Type: Spontaneous
  Country: US (occurrence: US)
  Receive Date: 20230120
  Receipt Date: 20230120
  Transmission Date: 20230417
  Serious: No
  Sender: FDA-Public Use
  Company Number: US-SANOFI-01449150

PATIENT
  Age: 50 Year
  Sex: Female

DRUGS (1)
  1. DUPIXENT [Suspect]
     Active Substance: DUPILUMAB
     Indication: Eczema
     Dosage: QOW
     Dates: start: 2021

REACTIONS (5)
  - Dry skin [Unknown]
  - Skin fissures [Unknown]
  - Accidental exposure to product [Unknown]
  - Intentional product misuse [Unknown]
  - Product preparation error [Unknown]

NARRATIVE: CASE EVENT DATE: 20230112
